FAERS Safety Report 9431803 (Version 5)
Quarter: 2013Q4

REPORT INFORMATION
  Report Type: Spontaneous
  Country: US (occurrence: None)
  Receive Date: 20130726
  Receipt Date: 20131230
  Transmission Date: 20140711
  Serious: Yes (Hospitalization)
  Sender: FDA-Public Use
  Company Number: 2013US001966

PATIENT
  Age: 89 Year
  Sex: Female
  Weight: 43.4 kg

DRUGS (26)
  1. PONATINIB [Suspect]
     Indication: CHRONIC MYELOID LEUKAEMIA
     Route: 048
     Dates: start: 20110831, end: 20111208
  2. ACETAMINOPHEN [Concomitant]
  3. ALPRAZOLAM [Concomitant]
  4. ALUMINIUM HYDR. W/MAGNESIUM HYDR. + SIMETICONE (ALUMINIUM HYDR. W/MAGNESIUM HYDR. + SIMETICONE) [Concomitant]
  5. CARVEDILOL [Concomitant]
  6. DEXTROMETHORPHAN W/GUAIFENESIN [Concomitant]
  7. HYDROCORTISONE SODIUM SUCCINATE [Concomitant]
  8. SYNTHROID (LEVOTHYROXINE SODIUM) [Concomitant]
  9. LISINOPRIL [Concomitant]
  10. METOCLOPRAMIDE [Concomitant]
  11. ONDANSETRON HYDROCHLORIDE [Concomitant]
  12. PANTOPRAZOLE SODIUM [Concomitant]
  13. PROMETHAZINE [Concomitant]
  14. DOCUSATE SODIUM [Concomitant]
  15. SODIUM CHLORIDE [Concomitant]
  16. TEMAZEPAM [Concomitant]
  17. TRAMADOL HYDROCHLORIDE [Concomitant]
  18. LASIX (FUROSEMIDE SODIUM) [Concomitant]
  19. MAGNESIUM [Concomitant]
  20. PRILOSEC [Concomitant]
  21. KLOR-CON (POTASSIUM CHLORIDE) [Concomitant]
  22. CENTRUM [Concomitant]
  23. METAMUCIL [Concomitant]
  24. NASONEX [Concomitant]
  25. PREVIDENT [Concomitant]
  26. PROAIR HFA [Concomitant]

REACTIONS (13)
  - Pulmonary hypertension [None]
  - Pericardial effusion [None]
  - Dilatation atrial [None]
  - Tricuspid valve incompetence [None]
  - Haemoglobin decreased [None]
  - Haematocrit decreased [None]
  - Pleural effusion [None]
  - Dyspnoea exertional [None]
  - Exercise tolerance decreased [None]
  - Atelectasis [None]
  - Dizziness [None]
  - Splenomegaly [None]
  - Umbilical hernia [None]
